FAERS Safety Report 16539074 (Version 1)
Quarter: 2019Q3

REPORT INFORMATION
  Report Type: Spontaneous
  Country: US (occurrence: US)
  Receive Date: 20190705
  Receipt Date: 20190705
  Transmission Date: 20191004
  Serious: Yes (Other)
  Sender: FDA-Public Use
  Company Number: None

PATIENT
  Age: 38 Year
  Sex: Female
  Weight: 60.75 kg

DRUGS (10)
  1. MULTI VITAMIN [Concomitant]
     Active Substance: VITAMINS
  2. VITAMIN D [Concomitant]
     Active Substance: VITAMIN D NOS
  3. FISH OIL [Concomitant]
     Active Substance: FISH OIL
  4. PROBIOTIC [Concomitant]
     Active Substance: PROBIOTICS NOS
  5. AIMOVIG [Suspect]
     Active Substance: ERENUMAB-AOOE
     Indication: HEADACHE
     Dosage: QUANTITY:1 INJECTION(S);OTHER FREQUENCY:1 TIME A MONTH;OTHER ROUTE:INJECTED INTO ABDOMINAL SKIN?
     Dates: start: 20190201, end: 20190615
  6. AIMOVIG [Suspect]
     Active Substance: ERENUMAB-AOOE
     Indication: MIGRAINE
     Dosage: QUANTITY:1 INJECTION(S);OTHER FREQUENCY:1 TIME A MONTH;OTHER ROUTE:INJECTED INTO ABDOMINAL SKIN?
     Dates: start: 20190201, end: 20190615
  7. OXYGEN. [Concomitant]
     Active Substance: OXYGEN
  8. ZOLOFT [Concomitant]
     Active Substance: SERTRALINE HYDROCHLORIDE
  9. SUMATRIPTAN. [Concomitant]
     Active Substance: SUMATRIPTAN
  10. COQ10 [Concomitant]
     Active Substance: UBIDECARENONE

REACTIONS (2)
  - Anxiety [None]
  - Alopecia [None]

NARRATIVE: CASE EVENT DATE: 20190401
